FAERS Safety Report 8302756 (Version 2)
Quarter: 2014Q1

REPORT INFORMATION
  Report Type: Spontaneous
  Country: US (occurrence: US)
  Receive Date: 20111220
  Receipt Date: 20140102
  Transmission Date: 20141002
  Serious: Yes (Hospitalization)
  Sender: FDA-Public Use
  Company Number: US-GLAXOSMITHKLINE-A0938874A

PATIENT
  Age: 54 Year
  Sex: Female
  Weight: 97.7 kg

DRUGS (2)
  1. AVANDIA [Suspect]
     Indication: DIABETES MELLITUS
     Route: 048
     Dates: start: 20030325, end: 200608
  2. AVANDAMET [Suspect]
     Indication: DIABETES MELLITUS
     Route: 048
     Dates: start: 20041129, end: 20050220

REACTIONS (6)
  - Cardiovascular disorder [Unknown]
  - Cardiac failure congestive [Unknown]
  - Coronary artery disease [Unknown]
  - Acute coronary syndrome [Unknown]
  - Ischaemic cardiomyopathy [Unknown]
  - Angina pectoris [Unknown]
